FAERS Safety Report 7295163-7 (Version None)
Quarter: 2011Q1

REPORT INFORMATION
  Report Type: 
  Country: None (occurrence: None)
  Receive Date: 20110216
  Receipt Date: 20110203
  Transmission Date: 20110831
  Serious: Yes (Hospitalization)
  Sender: FDA-Public Use
  Company Number: BR-JNJFOC-20110201751

PATIENT
  Sex: Female
  Weight: 74 kg

DRUGS (3)
  1. PRENATAL  VITAMINS [Concomitant]
     Indication: VITAMIN SUPPLEMENTATION
  2. TYLENOL (CAPLET) [Suspect]
     Route: 048
  3. TYLENOL (CAPLET) [Suspect]
     Indication: PAIN
     Route: 048

REACTIONS (6)
  - EYE SWELLING [None]
  - DYSPHAGIA [None]
  - DRUG EXPOSURE DURING PREGNANCY [None]
  - PARAESTHESIA [None]
  - PRURITUS GENERALISED [None]
  - GENERALISED ERYTHEMA [None]
